FAERS Safety Report 5990322-5 (Version None)
Quarter: 2008Q4

REPORT INFORMATION
  Report Type: 
  Country: None (occurrence: None)
  Receive Date: 20081211
  Receipt Date: 20081205
  Transmission Date: 20090506
  Serious: Yes (Death, Hospitalization)
  Sender: FDA-Public Use
  Company Number: BE-ABBOTT-08P-013-0491468-00

PATIENT
  Sex: Male
  Weight: 70 kg

DRUGS (3)
  1. LUCRIN TRIDEPOT [Suspect]
     Indication: PROSTATE CANCER
     Dates: start: 20060427
  2. DOCETAXEL [Concomitant]
     Indication: DRUG USE FOR UNKNOWN INDICATION
  3. ESTRAMUSTINE PHOSPHATE SODIUM [Concomitant]
     Indication: DRUG USE FOR UNKNOWN INDICATION

REACTIONS (2)
  - GENERAL PHYSICAL HEALTH DETERIORATION [None]
  - PROSTATE CANCER [None]
